FAERS Safety Report 5946540-5 (Version None)
Quarter: 2008Q4

REPORT INFORMATION
  Report Type: 
  Country: None (occurrence: None)
  Receive Date: 20081110
  Receipt Date: 20081031
  Transmission Date: 20090506
  Serious: Yes (Other)
  Sender: FDA-Public Use
  Company Number: B0545185A

PATIENT
  Age: 56 Year
  Sex: Male

DRUGS (4)
  1. TRIZIVIR [Suspect]
     Indication: HIV INFECTION
     Route: 048
     Dates: start: 20050728, end: 20051103
  2. EPIVIR [Suspect]
     Indication: HIV INFECTION
     Route: 048
     Dates: start: 20051105
  3. VIRAMUNE [Suspect]
     Indication: HIV INFECTION
     Route: 048
     Dates: start: 20051105
  4. VIREAD [Suspect]
     Indication: HIV INFECTION
     Route: 048
     Dates: start: 20051105

REACTIONS (2)
  - GASTROINTESTINAL DISORDER [None]
  - HEPATOTOXICITY [None]
